FAERS Safety Report 7402329-1 (Version None)
Quarter: 2011Q2

REPORT INFORMATION
  Report Type: 
  Country: None (occurrence: None)
  Receive Date: 20110408
  Receipt Date: 20110401
  Transmission Date: 20111010
  Serious: Yes (Other)
  Sender: FDA-Public Use
  Company Number: JP-AMGEN-JPNCT2010005591

PATIENT
  Age: 73 Year
  Sex: Male
  Weight: 68 kg

DRUGS (14)
  1. CALCIUM LEVOFOLINATE [Concomitant]
     Indication: COLORECTAL CANCER
     Route: 041
     Dates: start: 20100629, end: 20100727
  2. KYTRIL [Concomitant]
     Dosage: UNK
     Route: 042
  3. ELPLAT [Suspect]
     Indication: COLORECTAL CANCER
     Route: 041
     Dates: start: 20100629, end: 20100727
  4. FLUOROURACIL [Suspect]
     Indication: COLORECTAL CANCER
     Route: 040
     Dates: start: 20100629, end: 20100727
  5. CALCIUM LEVOFOLINATE [Concomitant]
     Route: 041
     Dates: start: 20100810, end: 20100907
  6. CALCICOL [Concomitant]
     Dosage: UNK
     Route: 042
  7. ZOLADEX [Concomitant]
     Dosage: UNK
     Route: 042
  8. PANITUMUMAB [Suspect]
     Dosage: 4.8 MG/KG, Q2WK
     Route: 041
     Dates: start: 20100810, end: 20100907
  9. FLUOROURACIL [Suspect]
     Route: 040
     Dates: start: 20100810, end: 20100907
  10. FLUOROURACIL [Suspect]
     Route: 041
     Dates: start: 20100810, end: 20100907
  11. DECADRON [Concomitant]
     Dosage: UNK
     Route: 042
  12. MAGNESIUM SULFATE [Concomitant]
     Dosage: UNK
     Route: 042
  13. PANITUMUMAB [Suspect]
     Indication: COLORECTAL CANCER
     Dosage: 6 MG/KG, Q2WK
     Route: 041
     Dates: start: 20100629, end: 20100727
  14. FLUOROURACIL [Suspect]
     Route: 041
     Dates: start: 20100629, end: 20100727

REACTIONS (6)
  - URTICARIA [None]
  - STOMATITIS [None]
  - RASH [None]
  - DERMATITIS ACNEIFORM [None]
  - INFUSION RELATED REACTION [None]
  - NASAL MUCOSAL DISORDER [None]
